FAERS Safety Report 7606629-1 (Version None)
Quarter: 2011Q3

REPORT INFORMATION
  Report Type: 
  Country: None (occurrence: None)
  Receive Date: 20110713
  Receipt Date: 20110707
  Transmission Date: 20111222
  Serious: Yes (Hospitalization)
  Sender: FDA-Public Use
  Company Number: PHHY2011CH61075

PATIENT
  Age: 78 Year
  Sex: Female

DRUGS (2)
  1. AMILORIDE HYDROCHLORIDE [Suspect]
     Indication: ESSENTIAL HYPERTENSION
     Dosage: 1 DF, QD
     Route: 048
  2. DILZEM [Concomitant]
     Indication: HYPERTONIA
     Dosage: 240 MG, QD, LONG TERM USE

REACTIONS (4)
  - VOMITING [None]
  - INAPPROPRIATE ANTIDIURETIC HORMONE SECRETION [None]
  - HYPONATRAEMIA [None]
  - ASTHENIA [None]
